FAERS Safety Report 5476012-6 (Version None)
Quarter: 2007Q4

REPORT INFORMATION
  Report Type: 
  Country: None (occurrence: None)
  Receive Date: 20071003
  Receipt Date: 20071001
  Transmission Date: 20080405
  Serious: Yes (Other)
  Sender: FDA-Public Use
  Company Number: GB-BRISTOL-MYERS SQUIBB COMPANY-13924097

PATIENT
  Age: 17 Year
  Sex: Male

DRUGS (6)
  1. ABILIFY [Suspect]
     Dates: start: 20070706, end: 20070812
  2. LORAZEPAM [Concomitant]
     Indication: AGITATION
     Route: 048
     Dates: start: 20070706
  3. OLANZAPINE [Concomitant]
     Indication: AGITATION
     Route: 048
     Dates: start: 20070706
  4. OLANZAPINE [Concomitant]
     Indication: PSYCHOTIC DISORDER
     Route: 048
     Dates: start: 20070706
  5. PARACETAMOL [Concomitant]
     Route: 048
     Dates: start: 20070706
  6. ZOPICLONE [Concomitant]
     Indication: INSOMNIA
     Route: 048
     Dates: start: 20070706

REACTIONS (1)
  - EJACULATION FAILURE [None]
